FAERS Safety Report 24344832 (Version 1)
Quarter: 2024Q3

REPORT INFORMATION
  Report Type: Spontaneous
  Country: US (occurrence: US)
  Receive Date: 20240920
  Receipt Date: 20240920
  Transmission Date: 20241016
  Serious: No
  Sender: PFIZER
  Company Number: US-PFIZER INC-PV202400123136

PATIENT
  Age: 81 Year
  Sex: Female
  Weight: 59.592 kg

DRUGS (2)
  1. IBRANCE [Suspect]
     Active Substance: PALBOCICLIB
     Indication: Breast cancer metastatic
     Dosage: 100 MG, CYCLIC (FOR 21 DAYS + 7 DAY REST)
     Route: 048
     Dates: start: 20230918
  2. FASLODEX [Concomitant]
     Active Substance: FULVESTRANT
     Indication: Breast cancer metastatic
     Dosage: 500 MG, 1X/DAY
     Route: 030
     Dates: start: 20230918

REACTIONS (3)
  - Neutrophil count decreased [Unknown]
  - Dermatitis [Recovering/Resolving]
  - Rash [Recovering/Resolving]
